FAERS Safety Report 7516543-8 (Version None)
Quarter: 2011Q2

REPORT INFORMATION
  Report Type: 
  Country: None (occurrence: None)
  Receive Date: 20110601
  Receipt Date: 20110523
  Transmission Date: 20111010
  Serious: Yes (Hospitalization)
  Sender: FDA-Public Use
  Company Number: B0719909A

PATIENT
  Sex: Female
  Weight: 68 kg

DRUGS (1)
  1. PAZOPANIB [Suspect]
     Indication: METASTATIC RENAL CELL CARCINOMA
     Dosage: 800MG PER DAY
     Route: 048
     Dates: start: 20110301, end: 20110401

REACTIONS (6)
  - PLEURAL EFFUSION [None]
  - NAUSEA [None]
  - DYSPNOEA [None]
  - DEHYDRATION [None]
  - DIARRHOEA [None]
  - VOMITING [None]
